FAERS Safety Report 10300427 (Version 3)
Quarter: 2014Q3

REPORT INFORMATION
  Report Type: Spontaneous
  Country: JP (occurrence: JP)
  Receive Date: 20140713
  Receipt Date: 20140922
  Transmission Date: 20150326
  Serious: Yes (Hospitalization, Other)
  Sender: FDA-Public Use
  Company Number: PHHY2011JP20801

PATIENT
  Age: 56 Year
  Sex: Male

DRUGS (31)
  1. CERTICAN [Suspect]
     Active Substance: EVEROLIMUS
     Dosage: 1.25 MG, UNK
     Route: 048
     Dates: start: 20101118
  2. NEORAL [Suspect]
     Active Substance: CYCLOSPORINE
     Dosage: 90 MG, DAILY
     Route: 048
     Dates: start: 20100201, end: 20100304
  3. NEORAL [Suspect]
     Active Substance: CYCLOSPORINE
     Dosage: 80 MG, DAILY
     Route: 048
     Dates: start: 20100305
  4. NEORAL [Suspect]
     Active Substance: CYCLOSPORINE
     Dosage: 30 MG, DAILY
     Route: 048
     Dates: start: 20101203
  5. NEORAL [Suspect]
     Active Substance: CYCLOSPORINE
     Dosage: 95 MG, DAILY
     Route: 048
     Dates: start: 20100130, end: 20100131
  6. NEORAL [Suspect]
     Active Substance: CYCLOSPORINE
     Dosage: 80 MG, DAILY
     Route: 048
     Dates: start: 20100305, end: 20100425
  7. NEORAL [Suspect]
     Active Substance: CYCLOSPORINE
     Dosage: 40 MG, DAILY
     Route: 048
     Dates: start: 20100916, end: 20101102
  8. CERTICAN [Suspect]
     Active Substance: EVEROLIMUS
     Dosage: 1 MG, DAILY
     Route: 048
     Dates: start: 20100331, end: 20101117
  9. CERTICAN [Suspect]
     Active Substance: EVEROLIMUS
     Dosage: 1.25 MG, UNK
     Route: 048
     Dates: start: 20130824
  10. NEORAL [Suspect]
     Active Substance: CYCLOSPORINE
     Dosage: 60 MG, DAILY
     Route: 048
     Dates: start: 20100708
  11. CERTICAN [Suspect]
     Active Substance: EVEROLIMUS
     Indication: HEART TRANSPLANT
     Dosage: 1.5 MG, DAILY
     Route: 048
     Dates: start: 20100121, end: 20100124
  12. NEORAL [Suspect]
     Active Substance: CYCLOSPORINE
     Indication: HEART TRANSPLANT
     Dosage: 105 MG, DAILY
     Route: 048
     Dates: start: 20091030, end: 20100126
  13. NEORAL [Suspect]
     Active Substance: CYCLOSPORINE
     Dosage: 100 MG, DAILY
     Route: 048
     Dates: start: 20100127, end: 20100129
  14. NEORAL [Suspect]
     Active Substance: CYCLOSPORINE
     Dosage: 70 MG, DAILY
     Route: 048
     Dates: start: 20100426, end: 20100622
  15. NEORAL [Suspect]
     Active Substance: CYCLOSPORINE
     Dosage: 55 MG, DAILY
     Route: 048
     Dates: start: 20100723, end: 20100902
  16. NEORAL [Suspect]
     Active Substance: CYCLOSPORINE
     Dosage: 50 MG, DAILY
     Route: 048
     Dates: start: 20100903, end: 20100915
  17. CELLCEPT [Concomitant]
     Active Substance: MYCOPHENOLATE MOFETIL\MYCOPHENOLATE MOFETIL HYDROCHLORIDE
     Indication: HEART TRANSPLANT
     Dosage: 2500 MG, UNK
     Route: 048
     Dates: end: 20100120
  18. ZYLORIC [Concomitant]
     Active Substance: ALLOPURINOL
     Dosage: 100 MG, UNK
     Route: 048
  19. CERTICAN [Suspect]
     Active Substance: EVEROLIMUS
     Dosage: 0.75 MG, DAILY
     Route: 048
     Dates: start: 20100201, end: 20100330
  20. BUFFERIN [Concomitant]
     Active Substance: ASPIRIN
     Dosage: 81 MG, UNK
     Route: 048
  21. NEORAL [Suspect]
     Active Substance: CYCLOSPORINE
     Dosage: 60 MG, DAILY
     Route: 048
     Dates: start: 20100708, end: 20100722
  22. BLOPRESS [Concomitant]
     Active Substance: CANDESARTAN CILEXETIL
     Dosage: 4 MG
     Route: 048
     Dates: end: 20100727
  23. LASIX [Concomitant]
     Active Substance: FUROSEMIDE
     Dosage: 10 MG, UNK
     Route: 048
  24. CERTICAN [Suspect]
     Active Substance: EVEROLIMUS
     Indication: RENAL FAILURE
     Dosage: 1.25 MG, DAILY
     Route: 048
     Dates: start: 20100125, end: 20100125
  25. CERTICAN [Suspect]
     Active Substance: EVEROLIMUS
     Dosage: 1 MG, DAILY
     Route: 048
     Dates: start: 20100126, end: 20100131
  26. NEORAL [Suspect]
     Active Substance: CYCLOSPORINE
     Dosage: 50 MG, DAILY
     Route: 048
     Dates: start: 20100623, end: 20100707
  27. BLOPRESS [Concomitant]
     Active Substance: CANDESARTAN CILEXETIL
     Dosage: 4 MG, UNK
     Route: 048
     Dates: start: 19710227
  28. OMEPRAL [Concomitant]
     Active Substance: OMEPRAZOLE
     Dosage: 20 MG, UNK
     Route: 048
  29. HERBESSOR R [Concomitant]
     Dosage: 100 MG, UNK
     Route: 048
  30. MEVALOTIN [Concomitant]
     Active Substance: PRAVASTATIN SODIUM
     Dosage: 20 MG, UNK
     Route: 048
  31. AMLODIPINE [Concomitant]
     Active Substance: AMLODIPINE BESYLATE
     Dosage: 2.5 MG, UNK
     Route: 048

REACTIONS (10)
  - Pneumonia [Recovered/Resolved]
  - White blood cell count decreased [Recovering/Resolving]
  - Iron deficiency anaemia [Not Recovered/Not Resolved]
  - Stomatitis [Recovering/Resolving]
  - Lymphoedema [Not Recovered/Not Resolved]
  - Oral herpes [Recovering/Resolving]
  - Lower limb fracture [Recovering/Resolving]
  - Glucose tolerance impaired [Not Recovered/Not Resolved]
  - Renal impairment [Recovering/Resolving]
  - Fall [Recovering/Resolving]

NARRATIVE: CASE EVENT DATE: 20100125
